FAERS Safety Report 4424759-2 (Version None)
Quarter: 2004Q3

REPORT INFORMATION
  Report Type: 
  Country: None (occurrence: None)
  Receive Date: 20040805
  Receipt Date: 20040803
  Transmission Date: 20050211
  Serious: Yes (Life-Threatening, Hospitalization)
  Sender: FDA-Public Use
  Company Number: LTI2004A00165

PATIENT
  Age: 47 Year
  Sex: Male

DRUGS (6)
  1. LANSOPRAZOLE [Suspect]
     Indication: GASTRITIS
     Dosage: SEE IMAGE
     Route: 048
     Dates: start: 20040430, end: 20040528
  2. LANSOPRAZOLE [Suspect]
     Indication: PROPHYLAXIS AGAINST GASTROINTESTINAL ULCER
     Dosage: SEE IMAGE
     Route: 048
     Dates: start: 20040430, end: 20040528
  3. KETOPROFEN [Suspect]
     Indication: SCIATICA
     Dosage: 300 MG (250 MG , 2 IN 1 D) ORAL
     Route: 048
     Dates: start: 20040430, end: 20040528
  4. MYOLASTAN                   (TETRAZEPAM) [Suspect]
  5. PAROXETINE HCL [Concomitant]
  6. OXAZEPAM [Concomitant]

REACTIONS (5)
  - GASTRIC ULCER HAEMORRHAGE [None]
  - HAEMOGLOBIN DECREASED [None]
  - LOSS OF CONSCIOUSNESS [None]
  - MALAISE [None]
  - MELAENA [None]
